FAERS Safety Report 18821384 (Version 4)
Quarter: 2021Q4

REPORT INFORMATION
  Report Type: Spontaneous
  Country: JP (occurrence: JP)
  Receive Date: 20210201
  Receipt Date: 20211229
  Transmission Date: 20220303
  Serious: Yes (Other)
  Sender: FDA-Public Use
  Company Number: JP-PFIZER INC-2021072881

PATIENT
  Age: 45 Year
  Sex: Male
  Weight: 50.5 kg

DRUGS (30)
  1. ZYVOX [Suspect]
     Active Substance: LINEZOLID
     Indication: Staphylococcal infection
     Dosage: 600 MG, TWICE DAILY
     Route: 041
     Dates: start: 20200925, end: 20201003
  2. ZYVOX [Suspect]
     Active Substance: LINEZOLID
     Indication: Postoperative wound infection
     Dosage: 600 MG, TWICE DAILY
     Route: 041
     Dates: start: 20201009, end: 20201009
  3. ZYVOX [Suspect]
     Active Substance: LINEZOLID
     Dosage: 600 MG, TWICE DAILY
     Route: 041
     Dates: start: 20201015, end: 20201016
  4. ZYVOX [Suspect]
     Active Substance: LINEZOLID
     Indication: Staphylococcal infection
     Dosage: 600 MG, TWICE DAILY
     Route: 048
     Dates: start: 20201003, end: 20201008
  5. ZYVOX [Suspect]
     Active Substance: LINEZOLID
     Indication: Postoperative wound infection
     Dosage: 600 MG, TWICE DAILY
     Route: 048
     Dates: start: 20201010, end: 20201015
  6. ZYVOX [Suspect]
     Active Substance: LINEZOLID
     Dosage: 600 MG, TWICE DAILY
     Route: 048
     Dates: start: 20201017, end: 20201021
  7. OLMESARTAN MEDOXOMIL [Concomitant]
     Active Substance: OLMESARTAN MEDOXOMIL
     Dosage: 40 MG, 1X/DAY
     Route: 048
     Dates: start: 20200916
  8. CARVEDILOL [Concomitant]
     Active Substance: CARVEDILOL
     Dosage: 10 MG, 1X/DAY
     Route: 048
     Dates: start: 20200916
  9. NIFEDIPINE [Concomitant]
     Active Substance: NIFEDIPINE
     Dosage: 20 MG, 2X/DAY
     Route: 048
     Dates: start: 20200916
  10. NEXIUM [Concomitant]
     Active Substance: ESOMEPRAZOLE MAGNESIUM
     Dosage: 20 MG, 1X/DAY
     Route: 048
     Dates: start: 20200916
  11. BIOFERMIN [BACILLUS SUBTILIS;ENTEROCOCCUS FAECALIS;LACTOBACILLUS ACIDO [Concomitant]
     Dosage: 1 TABLET, 3X/DAY
     Route: 048
     Dates: start: 20200916
  12. FEXOFENADINE HYDROCHLORIDE [Concomitant]
     Active Substance: FEXOFENADINE HYDROCHLORIDE
     Dosage: 60 MG, 2X/DAY
     Route: 048
     Dates: start: 20200917
  13. FUROSEMIDE [Concomitant]
     Active Substance: FUROSEMIDE
     Dosage: 20 MG, 1X/DAY
     Route: 048
     Dates: start: 20200917
  14. FOSRENOL [Concomitant]
     Active Substance: LANTHANUM CARBONATE
     Dosage: 250 MG, 3X/DAY
     Route: 048
     Dates: start: 20200917
  15. MIYA-BM [Concomitant]
     Active Substance: CLOSTRIDIUM BUTYRICUM SPORES STRAIN M-55
     Dosage: 2 TABLETS, 3X/DAY
     Route: 048
     Dates: start: 20210917
  16. METHYLCOBALAMIN [Concomitant]
     Active Substance: METHYLCOBALAMIN
     Dosage: UNK
     Route: 048
  17. LOXOPROFEN [Concomitant]
     Active Substance: LOXOPROFEN
     Dosage: 60 MG, 3X/DAY
     Route: 048
     Dates: start: 20200917
  18. CALCIUM CARBONATE [Concomitant]
     Active Substance: CALCIUM CARBONATE
     Dosage: 500 MG, 2X/DAY
     Route: 048
     Dates: start: 20200909
  19. HEPARIN CALCIUM [Concomitant]
     Active Substance: HEPARIN CALCIUM
     Indication: Thrombosis prophylaxis
     Dosage: 5000 UNITS, 2X/DAY
     Route: 058
     Dates: start: 20200917, end: 20201230
  20. NOVORAPID [Concomitant]
     Active Substance: INSULIN ASPART
     Indication: Type 2 diabetes mellitus
     Dosage: 2 UNITS, 3X/DAY
     Route: 058
     Dates: start: 20201003, end: 20201110
  21. INSULIN GLARGINE [Concomitant]
     Active Substance: INSULIN GLARGINE
     Indication: Type 2 diabetes mellitus
     Dosage: 4 UNITS, 1X/DAY
     Route: 058
     Dates: start: 20200907, end: 20201014
  22. PIPERACILLIN SODIUM\TAZOBACTAM SODIUM [Concomitant]
     Active Substance: PIPERACILLIN SODIUM\TAZOBACTAM SODIUM
     Indication: Postoperative wound infection
     Dosage: 2.25 MG, 2X/DAY
     Route: 041
     Dates: start: 20200924, end: 20201022
  23. AMEZINIUM METILSULFATE [Concomitant]
     Active Substance: AMEZINIUM METILSULFATE
     Dosage: 1 TABLET, AS NEEDED
     Dates: start: 20200909
  24. CALONAL [Concomitant]
     Active Substance: ACETAMINOPHEN
     Indication: Pain
     Dosage: 2 TABLETS, AS NEEDED
     Route: 048
     Dates: start: 20200923
  25. ZOLPIDEM TARTRATE OD TAB.5MG [Concomitant]
     Indication: Insomnia
     Dosage: 5 MG, AS NEEDED
     Route: 048
     Dates: start: 20200919
  26. MAXACALCITOL [Concomitant]
     Active Substance: MAXACALCITOL
     Indication: Hyperparathyroidism secondary
     Dosage: 5 UG, AS NEEDED
     Route: 042
     Dates: start: 20200909
  27. DARBEPOETIN ALFA [Concomitant]
     Active Substance: DARBEPOETIN ALFA
     Indication: Nephrogenic anaemia
     Dosage: 180 UG, AS NEEDED
     Route: 042
     Dates: start: 20200909
  28. FENTANYL [Concomitant]
     Active Substance: FENTANYL
     Dosage: UNK
  29. ETILEFRINE HYDROCHLORIDE [Concomitant]
     Active Substance: ETILEFRINE HYDROCHLORIDE
     Indication: Blood pressure management
     Dosage: 20 MG, AS NEEDED
     Route: 041
     Dates: start: 20200921
  30. HUMAN RED BLOOD CELL [Concomitant]
     Active Substance: HUMAN RED BLOOD CELL
     Dosage: 2 UNITS, AS NEEDED
     Route: 041
     Dates: start: 20200925, end: 20201016

REACTIONS (2)
  - Optic neuritis [Unknown]
  - Off label use [Unknown]

NARRATIVE: CASE EVENT DATE: 20200925
